FAERS Safety Report 9331673 (Version 4)
Quarter: 2013Q3

REPORT INFORMATION
  Report Type: Spontaneous
  Country: US (occurrence: US)
  Receive Date: 20130605
  Receipt Date: 20130827
  Transmission Date: 20140515
  Serious: No
  Sender: FDA-Public Use
  Company Number: US-PFIZER INC-2013167252

PATIENT
  Age: 57 Year
  Sex: Female
  Weight: 70 kg

DRUGS (5)
  1. ESTRING [Suspect]
     Indication: ATROPHIC VULVOVAGINITIS
     Dosage: 2 MG, EVERY 3 MONTHS
     Route: 067
     Dates: start: 20130529, end: 20130607
  2. DEXILANT [Concomitant]
     Dosage: UNK
  3. SIMVASTATIN [Concomitant]
     Dosage: 20 MG, 1X/DAY
  4. LEVOTHYROXINE [Concomitant]
     Dosage: 50 UG, 1X/DAY
  5. ASPIRIN [Concomitant]
     Dosage: 81 MG, 1X/DAY

REACTIONS (6)
  - Product quality issue [Unknown]
  - Dysuria [Unknown]
  - Constipation [Unknown]
  - Proctalgia [Recovered/Resolved]
  - Vulvovaginal pain [Recovered/Resolved]
  - Vulvovaginal discomfort [Recovered/Resolved]
